FAERS Safety Report 13658748 (Version 6)
Quarter: 2017Q4

REPORT INFORMATION
  Report Type: Spontaneous
  Country: US (occurrence: US)
  Receive Date: 20170616
  Receipt Date: 20171013
  Transmission Date: 20180320
  Serious: No
  Sender: FDA-Public Use
  Company Number: PHEH2017US018332

PATIENT
  Sex: Female
  Weight: 56.69 kg

DRUGS (2)
  1. ZOFRAN ODT [Suspect]
     Active Substance: ONDANSETRON HYDROCHLORIDE
     Indication: PRODUCT USED FOR UNKNOWN INDICATION
     Route: 048
  2. ZOFRAN [Suspect]
     Active Substance: ONDANSETRON HYDROCHLORIDE
     Indication: VOMITING IN PREGNANCY
     Dosage: 04 MG, PRN
     Route: 048
     Dates: start: 200510, end: 200606

REACTIONS (3)
  - Maternal exposure during pregnancy [Unknown]
  - Injury [Unknown]
  - Product use in unapproved indication [Unknown]
